FAERS Safety Report 8539614-6 (Version None)
Quarter: 2012Q3

REPORT INFORMATION
  Report Type: 
  Country: None (occurrence: None)
  Receive Date: 20120726
  Receipt Date: 20120719
  Transmission Date: 20120928
  Serious: Yes (Other)
  Sender: FDA-Public Use
  Company Number: VE-PFIZER INC-2012170923

PATIENT
  Age: 62 Year
  Sex: Female

DRUGS (5)
  1. ALPRAZOLAM [Concomitant]
     Dosage: 1 MG, 1X/DAY
     Route: 048
     Dates: start: 20100101
  2. PROPRANOLOL [Concomitant]
     Dosage: 30 MG, 1X/DAY
     Route: 048
     Dates: start: 20100101
  3. OMEPRAZOLE [Concomitant]
     Dosage: 40 MG, 1X/DAY
     Route: 048
     Dates: start: 20100101
  4. LYRICA [Suspect]
     Indication: BACK PAIN
     Dosage: 75 MG, 1X/DAY
     Route: 048
     Dates: start: 20120705, end: 20120715
  5. MICARDIS [Concomitant]
     Dosage: 40 MG, 1X/DAY
     Route: 048
     Dates: start: 20100101

REACTIONS (7)
  - PARKINSONISM [None]
  - NAUSEA [None]
  - DIZZINESS [None]
  - TREMOR [None]
  - TACHYCARDIA [None]
  - SYNCOPE [None]
  - NERVOUSNESS [None]
